FAERS Safety Report 9931024 (Version 1)
Quarter: 2014Q1

REPORT INFORMATION
  Report Type: Spontaneous
  Country: JP (occurrence: JP)
  Receive Date: 20140227
  Receipt Date: 20140227
  Transmission Date: 20141002
  Serious: Yes (Hospitalization)
  Sender: FDA-Public Use
  Company Number: JP-009507513-1402JPN010947

PATIENT
  Sex: Female

DRUGS (1)
  1. FOSAMAC TABLETS 35MG [Suspect]
     Dosage: 35 MG, ONCE A WEEK
     Route: 048
     Dates: start: 2009

REACTIONS (3)
  - Alveolar osteitis [Unknown]
  - Tooth extraction [Unknown]
  - Tooth disorder [Unknown]
